FAERS Safety Report 10497789 (Version 2)
Quarter: 2014Q4

REPORT INFORMATION
  Report Type: Spontaneous
  Country: GB (occurrence: GB)
  Receive Date: 20141006
  Receipt Date: 20141006
  Transmission Date: 20150528
  Serious: Yes (Other)
  Sender: FDA-Public Use
  Company Number: GB-SA-2014SA120580

PATIENT
  Sex: Male

DRUGS (3)
  1. DOMPERIDONE [Concomitant]
     Active Substance: DOMPERIDONE
  2. DEXAMETHASONE. [Concomitant]
     Active Substance: DEXAMETHASONE
  3. JEVTANA [Suspect]
     Active Substance: CABAZITAXEL
     Indication: HORMONE-REFRACTORY PROSTATE CANCER
     Route: 042

REACTIONS (1)
  - Alanine aminotransferase increased [Recovered/Resolved with Sequelae]
